FAERS Safety Report 20084741 (Version 2)
Quarter: 2021Q4

REPORT INFORMATION
  Report Type: Spontaneous
  Country: KR (occurrence: KR)
  Receive Date: 20211118
  Receipt Date: 20211220
  Transmission Date: 20220304
  Serious: Yes (Other)
  Sender: FDA-Public Use
  Company Number: KR-JNJFOC-20211128514

PATIENT
  Sex: Male

DRUGS (2)
  1. SPRAVATO [Suspect]
     Active Substance: ESKETAMINE
     Indication: Depression
  2. SPRAVATO [Suspect]
     Active Substance: ESKETAMINE
     Dosage: IT WAS SCHEDULED TO BE ADMINISTERED AT 56 MGTWICE/WEEK DURING THE INDUCTION PERIOD, AND AT 56 MG ONC

REACTIONS (8)
  - Suicidal ideation [Recovered/Resolved]
  - Intentional self-injury [Unknown]
  - Anxiety [Recovered/Resolved]
  - Lethargy [Recovered/Resolved]
  - Nausea [Not Recovered/Not Resolved]
  - Dizziness [Not Recovered/Not Resolved]
  - Drug ineffective [Unknown]
  - Disorientation [Unknown]
